FAERS Safety Report 8478718 (Version 3)
Quarter: 2013Q2

REPORT INFORMATION
  Report Type: Spontaneous
  Country: JP (occurrence: JP)
  Receive Date: 20120327
  Receipt Date: 20130418
  Transmission Date: 20140414
  Serious: Yes (Hospitalization)
  Sender: FDA-Public Use
  Company Number: JP-ROCHE-1049503

PATIENT
  Age: 17 Year
  Sex: Female

DRUGS (7)
  1. ACTEMRA [Suspect]
     Indication: RHEUMATOID ARTHRITIS
     Route: 041
     Dates: start: 20100402
  2. SULFAMETHOXAZOLE/TRIMETHOPRIM [Suspect]
     Indication: INFECTIVE TENOSYNOVITIS
     Dosage: DOSAGE IS UNCERTAIN.
     Route: 048
     Dates: start: 20110324, end: 20110405
  3. MINOCYCLINE HYDROCHLORIDE [Suspect]
     Indication: INFECTIVE TENOSYNOVITIS
     Dosage: DOSAGE IS UNCERTAIN.
     Route: 041
  4. MEROPENEM [Suspect]
     Indication: INFECTIVE TENOSYNOVITIS
     Dosage: DOSAGE IS UNCERTAIN.
     Route: 041
  5. UNASYN [Suspect]
     Indication: INFECTIVE TENOSYNOVITIS
     Dosage: DOSAGE IS UNCERTAIN.
     Route: 048
  6. PREDNISOLON [Concomitant]
     Indication: RHEUMATOID ARTHRITIS
     Route: 048
  7. BREDININ [Concomitant]
     Indication: RHEUMATOID ARTHRITIS
     Route: 048
     Dates: start: 20070313

REACTIONS (3)
  - Infective tenosynovitis [Recovered/Resolved]
  - Toxic skin eruption [Recovered/Resolved]
  - Osteoporosis [Unknown]
